FAERS Safety Report 8764010 (Version 1)
Quarter: 2012Q4

REPORT INFORMATION
  Report Type: 
  Country: US (occurrence: US)
  Receive Date: 20120831
  Receipt Date: 20120831
  Transmission Date: 20130627
  Serious: Yes (Other)
  Sender: FDA-Public Use
  Company Number: US-SANOFI-AVENTIS-2012SA060076

PATIENT
  Age: 68 Year
  Sex: Male

DRUGS (6)
  1. PLAVIX [Suspect]
     Indication: STENT PLACEMENT
     Route: 048
     Dates: start: 2011, end: 201206
  2. ASPIRIN [Suspect]
     Route: 065
  3. CRESTOR /UNK/ [Concomitant]
  4. DIOVANE [Concomitant]
  5. METFORMIN [Concomitant]
  6. METOPROLOL [Concomitant]

REACTIONS (3)
  - Carotid artery thrombosis [Not Recovered/Not Resolved]
  - Amnesia [Not Recovered/Not Resolved]
  - Fatigue [Not Recovered/Not Resolved]
